FAERS Safety Report 25683248 (Version 1)
Quarter: 2025Q3

REPORT INFORMATION
  Report Type: Spontaneous
  Country: GB (occurrence: GB)
  Receive Date: 20250814
  Receipt Date: 20250814
  Transmission Date: 20251021
  Serious: Yes (Other)
  Sender: PFIZER
  Company Number: GB-PFIZER INC-202500161032

PATIENT
  Age: 80 Year
  Sex: Female

DRUGS (3)
  1. ELREXFIO [Suspect]
     Active Substance: ELRANATAMAB-BCMM
     Indication: Plasma cell myeloma
     Dates: start: 202501, end: 20250801
  2. HUMAN IMMUNOGLOBULIN G [Concomitant]
     Active Substance: HUMAN IMMUNOGLOBULIN G
     Indication: Plasma cell myeloma
  3. ZOMETA [Concomitant]
     Active Substance: ZOLEDRONIC ACID
     Indication: Plasma cell myeloma

REACTIONS (5)
  - Cytokine release syndrome [Unknown]
  - Nausea [Unknown]
  - Constipation [Unknown]
  - Fatigue [Unknown]
  - Dry skin [Unknown]
